FAERS Safety Report 11169879 (Version 2)
Quarter: 2015Q3

REPORT INFORMATION
  Report Type: Spontaneous
  Country: CA (occurrence: CA)
  Receive Date: 20150607
  Receipt Date: 20150813
  Transmission Date: 20151125
  Serious: Yes (Other)
  Sender: FDA-Public Use
  Company Number: CA-SYMPLMED PHARMACEUTICALS-2015SYM00013

PATIENT
  Age: 75 Year
  Sex: Female

DRUGS (5)
  1. SINEQUAN [Concomitant]
     Active Substance: DOXEPIN HYDROCHLORIDE
     Indication: PRODUCT USED FOR UNKNOWN INDICATION
     Dosage: 10 MG, QD
  2. MEDROXY [Concomitant]
     Active Substance: MEDROXYPROGESTERONE ACETATE
     Indication: PRODUCT USED FOR UNKNOWN INDICATION
     Dosage: 2.5 MG, QD
  3. SYNTHROID [Concomitant]
     Active Substance: LEVOTHYROXINE SODIUM
     Indication: PRODUCT USED FOR UNKNOWN INDICATION
     Dosage: 100 ?G, QD
  4. PARIET [Concomitant]
     Active Substance: RABEPRAZOLE SODIUM
     Indication: PRODUCT USED FOR UNKNOWN INDICATION
     Dosage: 22 MG UNSPECIFIED DAILY DOSE
  5. ACEON [Suspect]
     Active Substance: PERINDOPRIL ERBUMINE
     Indication: HYPERTENSION
     Dosage: 2 MG, QD
     Route: 048
     Dates: start: 201411, end: 201412

REACTIONS (3)
  - Dyspnoea [Recovered/Resolved]
  - Lip swelling [Recovered/Resolved]
  - Swollen tongue [Recovered/Resolved]

NARRATIVE: CASE EVENT DATE: 201412
